FAERS Safety Report 11647916 (Version 1)
Quarter: 2015Q4

REPORT INFORMATION
  Report Type: Spontaneous
  Country: US (occurrence: None)
  Receive Date: 20151020
  Receipt Date: 20151020
  Transmission Date: 20160304
  Serious: No
  Sender: FDA-Public Use
  Company Number: None

PATIENT
  Age: 52 Year
  Sex: Female

DRUGS (1)
  1. ZOLEDRONIC [Suspect]
     Active Substance: ZOLEDRONIC ACID
     Indication: OSTEOPOROSIS
     Dosage: ONCE A YEAR
     Route: 042
     Dates: start: 20151015

REACTIONS (11)
  - Arthralgia [None]
  - Dizziness [None]
  - Rash [None]
  - Contusion [None]
  - Bone pain [None]
  - Balance disorder [None]
  - Oral mucosal blistering [None]
  - Headache [None]
  - Fatigue [None]
  - Muscular weakness [None]
  - Myalgia [None]

NARRATIVE: CASE EVENT DATE: 20151015
